FAERS Safety Report 4263653-7 (Version None)
Quarter: 2004Q1

REPORT INFORMATION
  Report Type: 
  Country: None (occurrence: None)
  Receive Date: 20040102
  Receipt Date: 20031216
  Transmission Date: 20041129
  Serious: Yes (Other)
  Sender: FDA-Public Use
  Company Number: USA031254762

PATIENT
  Age: 46 Year
  Sex: Female
  Weight: 119 kg

DRUGS (2)
  1. HUMULIN 70/30 [Suspect]
     Dosage: 30 U/2 DAY
     Dates: start: 19910101
  2. HUMULIN R [Concomitant]
     Dates: end: 19950101

REACTIONS (3)
  - CORONARY ARTERIAL STENT INSERTION [None]
  - FOOT FRACTURE [None]
  - OSTEOGENESIS IMPERFECTA [None]
